FAERS Safety Report 10083373 (Version 1)
Quarter: 2014Q2

REPORT INFORMATION
  Report Type: Spontaneous
  Country: US (occurrence: US)
  Receive Date: 20140417
  Receipt Date: 20140417
  Transmission Date: 20141212
  Serious: No
  Sender: FDA-Public Use
  Company Number: US-BAYER-2014-050903

PATIENT
  Age: 36 Year
  Sex: Male
  Weight: 90.7 kg

DRUGS (7)
  1. BETASERON [Suspect]
     Dosage: 0.3 MG, QOD
     Route: 058
  2. AMPYRA [Suspect]
     Dosage: UNK
     Dates: start: 2010
  3. AMPYRA [Suspect]
     Dosage: UNK
     Dates: start: 201401
  4. CELEXA [Concomitant]
     Dosage: 10 MG, UNK
  5. BACLOFEN [Concomitant]
     Dosage: 10 MG, UNK
  6. GABAPENTIN [Concomitant]
     Dosage: 100 MG, UNK
  7. TYSABRI [Concomitant]
     Dosage: 300/15 ML

REACTIONS (1)
  - Gait disturbance [None]
